FAERS Safety Report 5960413-3 (Version None)
Quarter: 2008Q4

REPORT INFORMATION
  Report Type: 
  Country: None (occurrence: None)
  Receive Date: 20081120
  Receipt Date: 20081110
  Transmission Date: 20090506
  Serious: Yes (Hospitalization)
  Sender: FDA-Public Use
  Company Number: BE-ELI_LILLY_AND_COMPANY-BE200811003622

PATIENT
  Age: 29 Year
  Sex: Male

DRUGS (4)
  1. ZYPREXA [Suspect]
     Indication: PSYCHOTIC DISORDER
     Dosage: 30 MG, DAILY (1/D)
     Route: 048
     Dates: start: 20080712, end: 20080721
  2. ZYPREXA [Suspect]
     Dosage: 30 MG, DAILY (1/D)
     Route: 048
     Dates: start: 20080722, end: 20080908
  3. CLOPIXOL [Concomitant]
  4. TEMESTA [Concomitant]
     Dates: start: 20080731, end: 20080825

REACTIONS (3)
  - AKATHISIA [None]
  - HOSPITALISATION [None]
  - OVERDOSE [None]
